FAERS Safety Report 20887091 (Version 1)
Quarter: 2022Q2

REPORT INFORMATION
  Report Type: Spontaneous
  Country: US (occurrence: US)
  Receive Date: 20220528
  Receipt Date: 20220528
  Transmission Date: 20220721
  Serious: Yes (Other)
  Sender: FDA-Public Use
  Company Number: US-BRISTOL-MYERS SQUIBB COMPANY-2022-048343

PATIENT
  Age: 57 Year
  Sex: Male
  Weight: 74.5 kg

DRUGS (1)
  1. ABECMA [Suspect]
     Active Substance: IDECABTAGENE VICLEUCEL
     Indication: Plasma cell myeloma
     Route: 065
     Dates: start: 20220310

REACTIONS (7)
  - Cytokine release syndrome [Unknown]
  - Fatigue [Unknown]
  - Diarrhoea [Unknown]
  - Tachycardia [Unknown]
  - Chills [Unknown]
  - Acute kidney injury [Unknown]
  - Nausea [Unknown]

NARRATIVE: CASE EVENT DATE: 20220311
